FAERS Safety Report 23259885 (Version 7)
Quarter: 2024Q2

REPORT INFORMATION
  Report Type: Spontaneous
  Country: US (occurrence: US)
  Receive Date: 20231204
  Receipt Date: 20240517
  Transmission Date: 20240716
  Serious: No
  Sender: FDA-Public Use
  Company Number: US-PFIZER INC-PV202300021329

PATIENT
  Age: 65 Year
  Sex: Female
  Weight: 79.8 kg

DRUGS (2)
  1. PREMARIN [Suspect]
     Active Substance: ESTROGENS, CONJUGATED
     Indication: Atrophic vulvovaginitis
     Dosage: 0.625 MG/G, APPLY TO AREA DAILY, A QUARTER AMOUNT.
  2. PREMARIN [Suspect]
     Active Substance: ESTROGENS, CONJUGATED
     Dosage: TAKE 1 GRAM NIGHTLY FOR 1 WEEK AND THEN TAKE 1 GRAM ON MONDAY, WEDNESDAY AND FRIDAY)
     Route: 067

REACTIONS (2)
  - Off label use [Unknown]
  - Product prescribing error [Unknown]
